FAERS Safety Report 16768508 (Version 2)
Quarter: 2019Q4

REPORT INFORMATION
  Report Type: Spontaneous
  Country: FR (occurrence: FR)
  Receive Date: 20190903
  Receipt Date: 20191205
  Transmission Date: 20200122
  Serious: Yes (Death, Life-Threatening)
  Sender: FDA-Public Use
  Company Number: FR-JNJFOC-20190839935

PATIENT
  Age: 78 Year
  Sex: Male
  Weight: 80 kg

DRUGS (2)
  1. IMBRUVICA [Suspect]
     Active Substance: IBRUTINIB
     Indication: B-CELL LYMPHOMA
     Route: 048
     Dates: start: 20190730, end: 20190812
  2. RIVAROXABAN [Suspect]
     Active Substance: RIVAROXABAN
     Indication: ATRIAL FIBRILLATION
     Route: 048
     Dates: end: 20190814

REACTIONS (3)
  - Skin haemorrhage [Recovered/Resolved]
  - Anaemia [Recovered/Resolved]
  - Mouth haemorrhage [Recovered/Resolved]

NARRATIVE: CASE EVENT DATE: 20190805
